FAERS Safety Report 8612800-2 (Version None)
Quarter: 2012Q3

REPORT INFORMATION
  Report Type: 
  Country: None (occurrence: None)
  Receive Date: 20120822
  Receipt Date: 20120302
  Transmission Date: 20120928
  Serious: No
  Sender: FDA-Public Use
  Company Number: US-ASTRAZENECA-2009UW15255

PATIENT
  Age: 60 Year
  Sex: Female
  Weight: 61.2 kg

DRUGS (3)
  1. CRESTOR [Suspect]
     Route: 048
  2. SYMBICORT [Suspect]
     Dosage: 160/4.5 MCG, DAILY
     Route: 055
  3. CRESTOR [Suspect]
     Route: 048

REACTIONS (4)
  - STRESS [None]
  - MUSCLE SPASMS [None]
  - SINUSITIS [None]
  - SINUS DISORDER [None]
